FAERS Safety Report 13748951 (Version 1)
Quarter: 2017Q3

REPORT INFORMATION
  Report Type: Spontaneous
  Country: US (occurrence: US)
  Receive Date: 20170712
  Receipt Date: 20170712
  Transmission Date: 20171127
  Serious: Yes (Other)
  Sender: FDA-Public Use
  Company Number: None

PATIENT
  Age: 26 Year
  Sex: Female
  Weight: 63 kg

DRUGS (2)
  1. MIRVASO [Suspect]
     Active Substance: BRIMONIDINE TARTRATE
     Indication: ROSACEA
     Dosage: 2 GRAMS; PUT ON FACE?
     Route: 061
     Dates: start: 20170629, end: 20170704
  2. MIRVASO [Suspect]
     Active Substance: BRIMONIDINE TARTRATE
     Indication: ERYTHEMA
     Dosage: 2 GRAMS; PUT ON FACE?
     Route: 061
     Dates: start: 20170629, end: 20170704

REACTIONS (3)
  - Application site erythema [None]
  - Application site pain [None]
  - Swelling face [None]

NARRATIVE: CASE EVENT DATE: 20170705
